FAERS Safety Report 10435069 (Version 1)
Quarter: 2014Q3

REPORT INFORMATION
  Report Type: Spontaneous
  Country: US (occurrence: None)
  Receive Date: 20140815
  Receipt Date: 20140815
  Transmission Date: 20150326
  Serious: No
  Sender: FDA-Public Use
  Company Number: 2014TUS004964

PATIENT
  Age: 23 Year
  Sex: Female

DRUGS (6)
  1. RITALIN (METHYLPHENIDATE HYDROCHLORIDE) [Concomitant]
     Active Substance: METHYLPHENIDATE HYDROCHLORIDE
  2. SINGULAIR (MONTELUKAST SODIUM) [Concomitant]
  3. UNKNOWN PPL (OMEPRAZOLE) [Concomitant]
  4. MIRAPEX [Concomitant]
     Active Substance: PRAMIPEXOLE DIHYDROCHLORIDE
  5. BRINTELLIX [Suspect]
     Active Substance: VORTIOXETINE HYDROBROMIDE
     Indication: MAJOR DEPRESSION
     Route: 048
     Dates: start: 2014, end: 2014
  6. DOXEPIN [Concomitant]
     Active Substance: DOXEPIN

REACTIONS (2)
  - Vomiting [None]
  - Nausea [None]
